FAERS Safety Report 16083128 (Version 1)
Quarter: 2019Q1

REPORT INFORMATION
  Report Type: Spontaneous
  Country: GB (occurrence: GB)
  Receive Date: 20190318
  Receipt Date: 20190318
  Transmission Date: 20190418
  Serious: Yes (Hospitalization, Other)
  Sender: FDA-Public Use
  Company Number: GB-ACCORD-113246

PATIENT
  Age: 85 Year

DRUGS (8)
  1. CLOPIDOGREL [Suspect]
     Active Substance: CLOPIDOGREL BISULFATE
     Indication: PRODUCT USED FOR UNKNOWN INDICATION
     Dosage: MORNING, SUSPENDED DURING ADMISSION
     Route: 048
  2. FULTIUM-D3 [Concomitant]
     Active Substance: CHOLECALCIFEROL
  3. ESCITALOPRAM [Suspect]
     Active Substance: ESCITALOPRAM OXALATE
     Indication: PRODUCT USED FOR UNKNOWN INDICATION
     Dosage: MORNING, CONTINUED DURING ADMISSION WITH PROTON PUMP INHIBITOR PROTECTION
     Route: 048
  4. CODEINE PHOSPHATE/PARACETAMOL [Concomitant]
     Dosage: 8MG/500MG
  5. CO-BENELDOPA [Concomitant]
     Active Substance: BENSERAZIDE HYDROCHLORIDE\LEVODOPA
     Dosage: 25MG/100MG
  6. PARACETAMOL [Concomitant]
     Active Substance: ACETAMINOPHEN
  7. ALVERINE [Concomitant]
     Active Substance: ALVERINE
  8. AMLODIPINE [Concomitant]
     Active Substance: AMLODIPINE BESYLATE

REACTIONS (2)
  - Haematemesis [Unknown]
  - Gastrointestinal haemorrhage [Recovered/Resolved]

NARRATIVE: CASE EVENT DATE: 20181021
